FAERS Safety Report 5463828-5 (Version None)
Quarter: 2007Q3

REPORT INFORMATION
  Report Type: 
  Country: None (occurrence: None)
  Receive Date: 20070919
  Receipt Date: 20070904
  Transmission Date: 20080115
  Serious: Yes (Hospitalization)
  Sender: FDA-Public Use
  Company Number: PAR_01721_2007

PATIENT
  Sex: Female
  Weight: 52.1637 kg

DRUGS (10)
  1. IBUPROFEN [Suspect]
     Indication: ARTHRALGIA
     Dosage: 2DF ORAL
     Route: 048
  2. IBUPROFEN [Suspect]
     Indication: BACK PAIN
     Dosage: 2DF ORAL
     Route: 048
  3. NAPROXEN SODIUM [Suspect]
     Indication: ARTHRALGIA
     Dosage: 2 DF ORAL
     Route: 048
  4. NAPROXEN SODIUM [Suspect]
     Indication: BACK PAIN
     Dosage: 2 DF ORAL
     Route: 048
  5. NAPROXEN SODIUM [Suspect]
     Indication: PAIN
     Dosage: 220 MG ORAL
     Route: 048
     Dates: start: 20070725, end: 20070729
  6. EXCEDRIN [Suspect]
     Indication: ARTHRALGIA
     Dosage: 2 DF ORAL
     Route: 048
  7. EXCEDRIN [Suspect]
     Indication: BACK PAIN
     Dosage: 2 DF ORAL
     Route: 048
  8. OMEPRAZOLE [Concomitant]
  9. LORAZEPAM [Concomitant]
  10. SENNA ALEXANDRINA [Concomitant]

REACTIONS (19)
  - ABDOMINAL DISTENSION [None]
  - ABDOMINAL PAIN UPPER [None]
  - BLOOD PRESSURE DIASTOLIC INCREASED [None]
  - CHEST DISCOMFORT [None]
  - CONSTIPATION [None]
  - CONTUSION [None]
  - DYSPEPSIA [None]
  - ERYTHEMA [None]
  - FEELING OF BODY TEMPERATURE CHANGE [None]
  - FLATULENCE [None]
  - GASTRITIS [None]
  - GASTROINTESTINAL SOUNDS ABNORMAL [None]
  - HYPERSENSITIVITY [None]
  - NAUSEA [None]
  - PEPTIC ULCER [None]
  - RASH [None]
  - RASH PAPULAR [None]
  - SKIN EXFOLIATION [None]
  - VOMITING [None]
